FAERS Safety Report 13066451 (Version 2)
Quarter: 2016Q4

REPORT INFORMATION
  Report Type: Spontaneous
  Country: TR (occurrence: TR)
  Receive Date: 20161227
  Receipt Date: 20161228
  Transmission Date: 20170207
  Serious: Yes (Congenital Anomaly)
  Sender: FDA-Public Use
  Company Number: TR-ABBVIE-16P-161-1822395-00

PATIENT
  Age: 16 Month
  Sex: Female
  Weight: 11 kg

DRUGS (1)
  1. VALPROIC ACID. [Suspect]
     Active Substance: VALPROIC ACID
     Indication: MATERNAL EXPOSURE TIMING UNSPECIFIED
     Route: 064

REACTIONS (8)
  - Dysmorphism [Unknown]
  - Foetal anticonvulsant syndrome [Unknown]
  - Developmental delay [Unknown]
  - Joint contracture [Unknown]
  - Congenital foot malformation [Unknown]
  - Foetal exposure during pregnancy [Unknown]
  - Congenital hand malformation [Unknown]
  - Growth retardation [Unknown]
